FAERS Safety Report 8291987-8 (Version None)
Quarter: 2012Q2

REPORT INFORMATION
  Report Type: 
  Country: None (occurrence: None)
  Receive Date: 20120417
  Receipt Date: 20120411
  Transmission Date: 20120825
  Serious: Yes (Hospitalization)
  Sender: FDA-Public Use
  Company Number: IT-TEVA-331668USA

PATIENT
  Sex: Female
  Weight: 55 kg

DRUGS (8)
  1. VINORELBINE [Suspect]
     Indication: HODGKIN'S DISEASE
     Dates: start: 20120327, end: 20120328
  2. BACTRIM [Concomitant]
     Indication: ANTIBIOTIC PROPHYLAXIS
     Route: 048
     Dates: start: 20120309, end: 20120327
  3. METOCLOPRAMIDE [Concomitant]
     Indication: PROPHYLAXIS OF NAUSEA AND VOMITING
     Dosage: 30 ML;
     Dates: start: 20120321, end: 20120327
  4. LANSOPRAZOLE [Concomitant]
     Indication: PROPHYLAXIS AGAINST GASTROINTESTINAL ULCER
     Dosage: 30 MILLIGRAM;
     Dates: start: 20120307, end: 20120328
  5. ALLOPURINOL [Concomitant]
     Indication: PROPHYLAXIS
     Dosage: 300 MILLIGRAM;
     Dates: start: 20120307, end: 20120328
  6. BENDAMUSTINE [Suspect]
     Indication: HODGKIN'S DISEASE
     Route: 042
     Dates: start: 20120327, end: 20120328
  7. GEMCITABINE [Suspect]
     Indication: HODGKIN'S DISEASE
     Dates: start: 20120327, end: 20120328
  8. VALACICLOVIR [Concomitant]

REACTIONS (4)
  - PYREXIA [None]
  - SEPSIS [None]
  - HYPOTENSION [None]
  - TACHYCARDIA [None]
